FAERS Safety Report 10031224 (Version 1)
Quarter: 2014Q1

REPORT INFORMATION
  Report Type: Spontaneous
  Country: US (occurrence: US)
  Receive Date: 20140324
  Receipt Date: 20140324
  Transmission Date: 20141002
  Serious: No
  Sender: FDA-Public Use
  Company Number: US-BIOGENIDEC-2014BI026827

PATIENT
  Age: 71 Year
  Sex: Female

DRUGS (6)
  1. AVONEX [Suspect]
     Indication: MULTIPLE SCLEROSIS
     Route: 030
     Dates: start: 20110411
  2. ALEVE [Concomitant]
  3. AMANTADINE HCL [Concomitant]
  4. AMBIEN [Concomitant]
  5. CIPRO [Concomitant]
  6. MULTIPLE VITAMIN [Concomitant]

REACTIONS (1)
  - Contusion [Unknown]
